FAERS Safety Report 5086372-6 (Version None)
Quarter: 2006Q3

REPORT INFORMATION
  Report Type: 
  Country: None (occurrence: None)
  Receive Date: 20060821
  Receipt Date: 20060821
  Transmission Date: 20061208
  Serious: Yes (Other)
  Sender: FDA-Public Use
  Company Number: None

PATIENT

DRUGS (2)
  1. ZYRTEC [Suspect]
     Dosage: TABLET
  2. ZYPREXA [Suspect]
     Dosage: TABLET

REACTIONS (11)
  - ABNORMAL BEHAVIOUR [None]
  - BLOOD PRESSURE DECREASED [None]
  - CONVULSION [None]
  - DRUG ADMINISTRATION ERROR [None]
  - DRUG DISPENSING ERROR [None]
  - FAECAL INCONTINENCE [None]
  - FALL [None]
  - HEART RATE IRREGULAR [None]
  - MEDICATION ERROR [None]
  - SOMNOLENCE [None]
  - URINARY INCONTINENCE [None]
